FAERS Safety Report 4864473-2 (Version None)
Quarter: 2005Q4

REPORT INFORMATION
  Report Type: 
  Country: None (occurrence: None)
  Receive Date: 20051222
  Receipt Date: 20050722
  Transmission Date: 20060501
  Serious: Yes (Hospitalization)
  Sender: FDA-Public Use
  Company Number: GB-BRISTOL-MYERS SQUIBB COMPANY-13047998

PATIENT
  Age: 80 Year
  Sex: Female

DRUGS (2)
  1. MODITEN DEPOT [Suspect]
  2. RISPERDAL [Suspect]
     Dosage: THE DOSE OF RISPERDAL WAS DECREASED TO 1 MG DAILY IN THE EVENING.

REACTIONS (2)
  - HYPERTENSION [None]
  - URINARY TRACT INFECTION [None]
